FAERS Safety Report 5946528-4 (Version None)
Quarter: 2008Q4

REPORT INFORMATION
  Report Type: 
  Country: None (occurrence: None)
  Receive Date: 20081110
  Receipt Date: 20081105
  Transmission Date: 20090506
  Serious: Yes (Other)
  Sender: FDA-Public Use
  Company Number: B0544443A

PATIENT
  Age: 78 Year
  Sex: Female

DRUGS (4)
  1. ARIXTRA [Suspect]
     Indication: THROMBOSIS PROPHYLAXIS
     Dosage: 1.5MG PER DAY
     Route: 058
     Dates: start: 20081024, end: 20081027
  2. NORVASC [Concomitant]
     Route: 048
  3. LIPITOR [Concomitant]
     Route: 048
  4. CEFAMEZIN [Concomitant]
     Dosage: 2G PER DAY
     Route: 065
     Dates: start: 20081024, end: 20081025

REACTIONS (4)
  - ALANINE AMINOTRANSFERASE INCREASED [None]
  - ASPARTATE AMINOTRANSFERASE INCREASED [None]
  - BLOOD ALKALINE PHOSPHATASE INCREASED [None]
  - HEPATIC FUNCTION ABNORMAL [None]
